FAERS Safety Report 10738531 (Version 2)
Quarter: 2015Q1

REPORT INFORMATION
  Report Type: Report from Study
  Country: DE (occurrence: DE)
  Receive Date: 20150126
  Receipt Date: 20150204
  Transmission Date: 20150721
  Serious: Yes (Death)
  Sender: FDA-Public Use
  Company Number: DE-BAYER-2015-006886

PATIENT

DRUGS (1)
  1. ACETYLSALICYLIC ACID [Suspect]
     Active Substance: ASPIRIN
     Dosage: 32 G, ONCE
     Route: 048

REACTIONS (3)
  - Intentional overdose [None]
  - Toxicity to various agents [Fatal]
  - Completed suicide [Fatal]
